FAERS Safety Report 4528774-X (Version None)
Quarter: 2004Q4

REPORT INFORMATION
  Report Type: 
  Country: None (occurrence: None)
  Receive Date: 20041214
  Receipt Date: 20041203
  Transmission Date: 20050328
  Serious: Yes (Hospitalization)
  Sender: FDA-Public Use
  Company Number: STA-AE-04-MTX-613

PATIENT
  Age: 61 Year
  Sex: Female

DRUGS (6)
  1. METHOTREXATE [Suspect]
     Indication: PSORIASIS
     Dosage: 3 X 2.5 MG TABLETS WEEKLY
     Dates: start: 20010101, end: 20041022
  2. CITALOPRAM HYDROBROMIDE [Concomitant]
  3. RISPERDAL [Concomitant]
  4. LORAZEPAM [Concomitant]
  5. INSULATARD NPH HUMAN [Concomitant]
  6. AVANDIA (ROSIGLITAZONE MALAEATE) [Concomitant]

REACTIONS (16)
  - AMMONIA INCREASED [None]
  - BLOOD ALBUMIN INCREASED [None]
  - BLOOD CALCIUM INCREASED [None]
  - BLOOD POTASSIUM INCREASED [None]
  - DRUG TOXICITY [None]
  - GASTROINTESTINAL HAEMORRHAGE [None]
  - HAEMOGLOBIN DECREASED [None]
  - HEPATIC CIRRHOSIS [None]
  - HEPATIC ENCEPHALOPATHY [None]
  - HEPATIC FAILURE [None]
  - HEPATIC STEATOSIS [None]
  - HEPATITIS [None]
  - PLATELET COUNT DECREASED [None]
  - PORTAL HYPERTENSION [None]
  - VARICES OESOPHAGEAL [None]
  - WHITE BLOOD CELL COUNT INCREASED [None]
